FAERS Safety Report 10668109 (Version 2)
Quarter: 2014Q4

REPORT INFORMATION
  Report Type: Spontaneous
  Country: JP (occurrence: JP)
  Receive Date: 20141222
  Receipt Date: 20141230
  Transmission Date: 20150529
  Serious: Yes (Other)
  Sender: FDA-Public Use
  Company Number: JP-PFIZER INC-2014350764

PATIENT
  Age: 81 Year
  Sex: Female

DRUGS (4)
  1. LYRICA [Suspect]
     Active Substance: PREGABALIN
     Indication: HYPOAESTHESIA
     Dosage: 50 MG, DAILY
     Route: 048
     Dates: start: 20141211
  2. LYRICA [Suspect]
     Active Substance: PREGABALIN
     Indication: PAIN IN EXTREMITY
     Dosage: 25 MG, DAILY
     Route: 048
     Dates: start: 20140804, end: 20141210
  3. OPALMON [Concomitant]
     Active Substance: LIMAPROST
     Dosage: UNK
     Route: 048
  4. LYRICA [Suspect]
     Active Substance: PREGABALIN
     Indication: SPINAL PAIN

REACTIONS (4)
  - Vision blurred [Unknown]
  - Optic nerve disorder [Unknown]
  - Abnormal sensation in eye [Unknown]
  - Lacrimation increased [Unknown]

NARRATIVE: CASE EVENT DATE: 201412
